FAERS Safety Report 4956450-8 (Version None)
Quarter: 2006Q1

REPORT INFORMATION
  Report Type: 
  Country: None (occurrence: None)
  Receive Date: 20060328
  Receipt Date: 20060328
  Transmission Date: 20060701
  Serious: Yes (Hospitalization)
  Sender: FDA-Public Use
  Company Number: None

PATIENT
  Age: 28 Year
  Sex: Female
  Weight: 98.8842 kg

DRUGS (3)
  1. ORTHO TRI-CYCLEN [Suspect]
     Indication: CONTRACEPTION
     Dosage: ONE DAILY [CHRONIC]
  2. IBUPROFEN [Concomitant]
  3. SINGULAIR [Concomitant]

REACTIONS (2)
  - OEDEMA PERIPHERAL [None]
  - PULMONARY EMBOLISM [None]
